FAERS Safety Report 6035089-X (Version None)
Quarter: 2009Q1

REPORT INFORMATION
  Report Type: 
  Country: None (occurrence: None)
  Receive Date: 20090112
  Receipt Date: 20090105
  Transmission Date: 20090719
  Serious: Yes (Hospitalization, Other)
  Sender: FDA-Public Use
  Company Number: FR-ROXANE LABORATORIES, INC.-2009-RO-00007RO

PATIENT
  Age: 77 Year
  Sex: Male

DRUGS (9)
  1. RAMIPRIL [Suspect]
     Dosage: 1.25MG
  2. AMLODIPINE [Suspect]
     Dosage: 5MG
  3. LYSINE ACETYLSALICYLATE [Suspect]
     Dosage: 75MG
  4. CLOPIDOGREL [Suspect]
     Dosage: 75MG
  5. SIMVASTATIN [Suspect]
     Dosage: 20MG
  6. PANTOPRAZOLE SODIUM [Suspect]
     Dosage: 40MG
  7. INSULIN LISPRO [Suspect]
     Dosage: 30U
  8. CIPROFLOXACIN [Suspect]
     Indication: ESCHERICHIA INFECTION
     Dosage: 1000MG
  9. FLURBIPROFEN [Suspect]
     Dosage: 100MG

REACTIONS (5)
  - BENIGN PROSTATIC HYPERPLASIA [None]
  - BLADDER DISTENSION [None]
  - ESCHERICHIA INFECTION [None]
  - PAIN [None]
  - RENAL FAILURE ACUTE [None]
